FAERS Safety Report 7761937-9 (Version None)
Quarter: 2011Q3

REPORT INFORMATION
  Report Type: 
  Country: None (occurrence: None)
  Receive Date: 20110920
  Receipt Date: 20110914
  Transmission Date: 20111222
  Serious: Yes (Other)
  Sender: FDA-Public Use
  Company Number: US-SANOFI-AVENTIS-2011SA044602

PATIENT
  Age: 61 Year
  Sex: Female
  Weight: 69.09 kg

DRUGS (8)
  1. TYLENOL-500 [Suspect]
     Dosage: UP TO 6 A DAY
     Route: 065
  2. MULTAQ [Suspect]
     Route: 048
     Dates: start: 20110627, end: 20110704
  3. CELEBREX [Concomitant]
     Indication: ARTHRITIS
     Dates: start: 20050101
  4. DIGOXIN [Concomitant]
     Indication: ATRIAL FIBRILLATION
     Dates: start: 20050101
  5. COREG [Concomitant]
     Dates: start: 20050101
  6. TRAMADOL HCL [Concomitant]
     Indication: PAIN
  7. COUMADIN [Concomitant]
     Indication: ANTICOAGULANT THERAPY
     Dates: start: 20050101
  8. LASIX [Concomitant]
     Indication: FLUID RETENTION
     Dates: start: 20050101

REACTIONS (20)
  - NIGHT SWEATS [None]
  - NAUSEA [None]
  - PRURITUS [None]
  - ABDOMINAL DISCOMFORT [None]
  - BLOOD BILIRUBIN INCREASED [None]
  - CHROMATURIA [None]
  - JAUNDICE [None]
  - HEPATITIS [None]
  - ABDOMINAL PAIN UPPER [None]
  - ASPARTATE AMINOTRANSFERASE INCREASED [None]
  - DYSPNOEA [None]
  - COUGH [None]
  - WHEEZING [None]
  - HEPATOCELLULAR INJURY [None]
  - FAECES DISCOLOURED [None]
  - ALANINE AMINOTRANSFERASE INCREASED [None]
  - MALAISE [None]
  - HEART RATE INCREASED [None]
  - CHOLECYSTITIS [None]
  - PULMONARY CONGESTION [None]
